FAERS Safety Report 15452969 (Version 1)
Quarter: 2018Q4

REPORT INFORMATION
  Report Type: Spontaneous
  Country: ES (occurrence: ES)
  Receive Date: 20181001
  Receipt Date: 20181001
  Transmission Date: 20190204
  Serious: Yes (Hospitalization)
  Sender: FDA-Public Use
  Company Number: ES-TEVA-2018-ES-960192

PATIENT
  Age: 81 Year
  Sex: Female

DRUGS (8)
  1. ATORVASTATINA (7400A) [Concomitant]
     Active Substance: ATORVASTATIN
     Dosage: 40 MG DAY
     Route: 048
     Dates: start: 20161030
  2. REPAGLINIDA 2 MG COMPRIMIDOS EFG, 90 COMPRIMIDOS [Suspect]
     Active Substance: REPAGLINIDE
     Indication: TYPE 2 DIABETES MELLITUS
     Dosage: 0-1-0
     Route: 048
     Dates: start: 20161030, end: 20171029
  3. MEMANTINA (2299A) [Concomitant]
     Active Substance: MEMANTINE HYDROCHLORIDE
     Dosage: 10 MG DAY
     Route: 048
     Dates: start: 20161030
  4. QUETIAPINA [Concomitant]
     Active Substance: QUETIAPINE
     Dosage: 25 MG DAY
     Route: 048
     Dates: start: 20161030
  5. METFORMINA [Suspect]
     Active Substance: METFORMIN HYDROCHLORIDE
     Indication: TYPE 2 DIABETES MELLITUS
     Dosage: 1-0-1
     Route: 048
     Dates: start: 20161030, end: 20171029
  6. LEVOTIROXINA (1842A) [Concomitant]
     Dosage: 75 MG DAY
     Route: 048
     Dates: start: 20161030
  7. ADIRO 100 MG COMPRIMIDOS GASTRORRESISTENTES EFG , 30 COMPRIMIDOS [Concomitant]
     Active Substance: ASPIRIN
     Dosage: 0-1-0
     Route: 048
     Dates: start: 20161030
  8. ENALAPRIL 20 [Concomitant]
     Active Substance: ENALAPRIL
     Dosage: 1-0-0
     Route: 048
     Dates: start: 20161030

REACTIONS (2)
  - Metabolic acidosis [Recovered/Resolved]
  - Hypoglycaemia [Recovered/Resolved]

NARRATIVE: CASE EVENT DATE: 20171028
